FAERS Safety Report 21725800 (Version 1)
Quarter: 2022Q4

REPORT INFORMATION
  Report Type: Spontaneous
  Country: US (occurrence: US)
  Receive Date: 20221214
  Receipt Date: 20221214
  Transmission Date: 20230113
  Serious: Yes (Life-Threatening, Hospitalization, Other)
  Sender: FDA-Public Use
  Company Number: US-SUN PHARMACEUTICAL INDUSTRIES LTD-2022R1-368353

PATIENT
  Age: 57 Year
  Sex: Female

DRUGS (1)
  1. BACLOFEN [Suspect]
     Active Substance: BACLOFEN
     Indication: Muscle spasms
     Dosage: UNK
     Route: 065

REACTIONS (6)
  - Anuria [Recovering/Resolving]
  - Shock [Recovering/Resolving]
  - Condition aggravated [Unknown]
  - Toxicity to various agents [Unknown]
  - Overdose [Unknown]
  - Cholecystitis [Recovering/Resolving]
